FAERS Safety Report 10334223 (Version 3)
Quarter: 2014Q4

REPORT INFORMATION
  Report Type: Report from Study
  Country: BR (occurrence: BR)
  Receive Date: 20140723
  Receipt Date: 20141222
  Transmission Date: 20150528
  Serious: Yes (Other)
  Sender: FDA-Public Use
  Company Number: BR-BAYER-2014-106954

PATIENT
  Age: 21 Year
  Sex: Female

DRUGS (1)
  1. BETAFERON [Suspect]
     Active Substance: INTERFERON BETA-1B
     Indication: RELAPSING-REMITTING MULTIPLE SCLEROSIS
     Dosage: 1 ML, QOD
     Route: 058
     Dates: start: 2009, end: 201406

REACTIONS (5)
  - Multiple sclerosis relapse [Recovered/Resolved]
  - Drug ineffective [None]
  - Dizziness [Recovered/Resolved]
  - Paraesthesia [Recovering/Resolving]
  - Multiple sclerosis relapse [Recovering/Resolving]

NARRATIVE: CASE EVENT DATE: 201312
